FAERS Safety Report 7728751-1 (Version None)
Quarter: 2011Q3

REPORT INFORMATION
  Report Type: 
  Country: None (occurrence: None)
  Receive Date: 20110906
  Receipt Date: 20110824
  Transmission Date: 20111222
  Serious: Yes (Hospitalization, Other)
  Sender: FDA-Public Use
  Company Number: DE-JNJFOC-20110807972

PATIENT
  Age: 68 Year
  Sex: Female

DRUGS (8)
  1. ETANERCEPT [Suspect]
     Indication: RHEUMATOID ARTHRITIS
     Dates: start: 20100901, end: 20101201
  2. BISOPROLOL FUMARATE [Concomitant]
  3. PREDNISOLONE [Suspect]
     Indication: PRODUCT USED FOR UNKNOWN INDICATION
  4. BETA-ACETYLDIGOXIN [Concomitant]
  5. PANTOPRAZOLE [Concomitant]
  6. ERGOCALCIFEROL [Concomitant]
     Dosage: 2 TIMES, 1000 UNITS
  7. VOLTAREN [Suspect]
     Indication: PRODUCT USED FOR UNKNOWN INDICATION
  8. SIMPONI [Suspect]
     Indication: RHEUMATOID ARTHRITIS
     Dosage: TWICE AT AN INTERVAL OF TWO WEEKS
     Route: 058
     Dates: start: 20101201, end: 20110124

REACTIONS (2)
  - CARDIAC FAILURE [None]
  - ATRIAL FIBRILLATION [None]
